FAERS Safety Report 8877570 (Version 1)
Quarter: 2012Q4

REPORT INFORMATION
  Report Type: Spontaneous
  Country: US (occurrence: None)
  Receive Date: 20121026
  Receipt Date: 20121026
  Transmission Date: 20130627
  Serious: No
  Sender: FDA-Public Use
  Company Number: None

PATIENT
  Sex: Male

DRUGS (2)
  1. MIRAPEX [Suspect]
     Indication: PARKINSON^S DISEASE
     Dosage: 1 year
  2. REQUIP [Suspect]
     Indication: PARKINSON^S DISEASE
     Dosage: 4 days

REACTIONS (3)
  - Hallucination [None]
  - Obsessive-compulsive disorder [None]
  - Paranoia [None]
